FAERS Safety Report 7900932-3 (Version None)
Quarter: 2011Q4

REPORT INFORMATION
  Report Type: 
  Country: None (occurrence: None)
  Receive Date: 20111108
  Receipt Date: 20111025
  Transmission Date: 20120403
  Serious: Yes (Other)
  Sender: FDA-Public Use
  Company Number: GB-ELI_LILLY_AND_COMPANY-GB201110006743

PATIENT
  Age: 23 Year
  Sex: Male

DRUGS (2)
  1. STRATTERA [Suspect]
     Dosage: 80 MG, UNK
     Route: 048
  2. STRATTERA [Suspect]
     Dosage: 40 MG, QD

REACTIONS (4)
  - MIGRAINE [None]
  - ABDOMINAL PAIN UPPER [None]
  - AMNESIA [None]
  - DRUG WITHDRAWAL SYNDROME [None]
